FAERS Safety Report 12384686 (Version 2)
Quarter: 2016Q2

REPORT INFORMATION
  Report Type: Spontaneous
  Country: DK (occurrence: DK)
  Receive Date: 20160519
  Receipt Date: 20160523
  Transmission Date: 20160815
  Serious: Yes (Hospitalization, Other)
  Sender: FDA-Public Use
  Company Number: DK-ACTAVIS-2016-09833

PATIENT
  Age: 21 Year
  Sex: Female

DRUGS (1)
  1. ANTABUSE [Suspect]
     Active Substance: DISULFIRAM
     Indication: ALCOHOL USE
     Dosage: 800 MG, DAILY
     Route: 048
     Dates: start: 20130704, end: 20130728

REACTIONS (3)
  - Pain [Not Recovered/Not Resolved]
  - Liver disorder [Recovered/Resolved with Sequelae]
  - Hepatitis [Recovered/Resolved with Sequelae]

NARRATIVE: CASE EVENT DATE: 201307
